FAERS Safety Report 10006498 (Version 1)
Quarter: 2014Q1

REPORT INFORMATION
  Report Type: Spontaneous
  Country: US (occurrence: US)
  Receive Date: 20140313
  Receipt Date: 20140313
  Transmission Date: 20141002
  Serious: Yes (Other)
  Sender: FDA-Public Use
  Company Number: US-ASTRAZENECA-2014SE16201

PATIENT
  Age: 65 Year
  Sex: Male

DRUGS (4)
  1. BRILINTA [Suspect]
     Indication: STENT PLACEMENT
     Route: 048
  2. ANGIOMAX [Concomitant]
  3. ASPIRIN [Concomitant]
  4. STATIN [Concomitant]

REACTIONS (2)
  - Renal failure acute [Unknown]
  - Retroperitoneal haemorrhage [Unknown]
